FAERS Safety Report 14305511 (Version 1)
Quarter: 2017Q4

REPORT INFORMATION
  Report Type: Spontaneous
  Country: JP (occurrence: JP)
  Receive Date: 20171219
  Receipt Date: 20171219
  Transmission Date: 20180321
  Serious: Yes (Hospitalization, Other)
  Sender: FDA-Public Use
  Company Number: JP-OTSUKA-JP-2012-13977

PATIENT
  Age: 78 Year
  Sex: Female

DRUGS (2)
  1. SEROQUEL [Suspect]
     Active Substance: QUETIAPINE FUMARATE
     Indication: PRODUCT USED FOR UNKNOWN INDICATION
     Dosage: 25 MG, QD
     Route: 048
     Dates: start: 20111229, end: 20120213
  2. ABILIFY [Suspect]
     Active Substance: ARIPIPRAZOLE
     Indication: DEMENTIA
     Dosage: 3 MG, QD
     Route: 048
     Dates: start: 20120213

REACTIONS (5)
  - Agitation [Unknown]
  - Fracture [Unknown]
  - Blood glucose increased [Unknown]
  - Hallucination [Unknown]
  - Delusion [Unknown]

NARRATIVE: CASE EVENT DATE: 201203
